FAERS Safety Report 8403540-3 (Version None)
Quarter: 2012Q2

REPORT INFORMATION
  Report Type: 
  Country: None (occurrence: None)
  Receive Date: 20120601
  Receipt Date: 20120529
  Transmission Date: 20120825
  Serious: No
  Sender: FDA-Public Use
  Company Number: US-ENDO PHARMACEUTICALS INC.-OPGN20120011

PATIENT
  Sex: Male

DRUGS (2)
  1. OXYMORPHONE HYDROCHLORIDE [Suspect]
     Indication: BREAKTHROUGH PAIN
     Route: 048
     Dates: start: 20111101
  2. OPANA ER [Concomitant]
     Indication: BACK PAIN
     Route: 048
     Dates: start: 20070101

REACTIONS (1)
  - NAUSEA [None]
